FAERS Safety Report 14111320 (Version 1)
Quarter: 2017Q4

REPORT INFORMATION
  Report Type: Spontaneous
  Country: US (occurrence: US)
  Receive Date: 20171020
  Receipt Date: 20171020
  Transmission Date: 20180321
  Serious: No
  Sender: FDA-Public Use
  Company Number: US-PFIZER INC-2017447846

PATIENT
  Sex: Female

DRUGS (1)
  1. PRISTIQ EXTENDED-RELEASE [Suspect]
     Active Substance: DESVENLAFAXINE SUCCINATE
     Dosage: 25 MG (50MG CUT IN HALF), TOOK THE PRODUCT MONDAY, TUESDAY, WEDNESDAY, AND LAST EVENING

REACTIONS (6)
  - Drug ineffective [Unknown]
  - Expired product administered [Unknown]
  - Headache [Unknown]
  - Peripheral coldness [Unknown]
  - Wrong technique in product usage process [Unknown]
  - Malaise [Unknown]
